FAERS Safety Report 14091725 (Version 1)
Quarter: 2017Q4

REPORT INFORMATION
  Report Type: Spontaneous
  Country: US (occurrence: US)
  Receive Date: 20171016
  Receipt Date: 20171016
  Transmission Date: 20180321
  Serious: Yes (Hospitalization, Other)
  Sender: FDA-Public Use
  Company Number: US-APOTEX-2017AP019737

PATIENT
  Age: 49 Year
  Sex: Male

DRUGS (3)
  1. FENTANYL. [Suspect]
     Active Substance: FENTANYL
     Indication: PRODUCT USED FOR UNKNOWN INDICATION
     Dosage: UNK
     Route: 042
  2. COCAINE [Suspect]
     Active Substance: COCAINE
     Indication: PRODUCT USED FOR UNKNOWN INDICATION
     Dosage: UNK
     Route: 042
  3. HEROIN [Suspect]
     Active Substance: DIAMORPHINE
     Indication: PRODUCT USED FOR UNKNOWN INDICATION
     Dosage: UNK
     Route: 042

REACTIONS (13)
  - Septic embolus [Recovering/Resolving]
  - Haemophilus test positive [Recovering/Resolving]
  - Renal tubular necrosis [Recovered/Resolved]
  - Streptococcus test positive [Recovering/Resolving]
  - Thrombocytopenia [Recovering/Resolving]
  - Acute respiratory distress syndrome [Recovering/Resolving]
  - Endocarditis [Recovering/Resolving]
  - Drug diversion [Unknown]
  - Actinomyces test positive [Recovering/Resolving]
  - Neisseria test positive [Recovering/Resolving]
  - Glomerulonephritis [Recovered/Resolved]
  - Anaemia [Recovering/Resolving]
  - Drug abuse [Unknown]
